FAERS Safety Report 5028002-5 (Version None)
Quarter: 2006Q2

REPORT INFORMATION
  Report Type: 
  Country: None (occurrence: None)
  Receive Date: 20060616
  Receipt Date: 20060609
  Transmission Date: 20061013
  Serious: Yes (Other)
  Sender: FDA-Public Use
  Company Number: 2006AP02733

PATIENT
  Age: 87 Year
  Sex: Female

DRUGS (3)
  1. IRESSA [Suspect]
     Indication: NON-SMALL CELL LUNG CANCER
     Route: 048
     Dates: start: 20060526
  2. MEXITIL [Suspect]
     Route: 048
     Dates: start: 19960101, end: 20060607
  3. TAGAMET [Concomitant]
     Route: 048
     Dates: start: 19960101, end: 20060608

REACTIONS (1)
  - HYPOAESTHESIA [None]
